FAERS Safety Report 17722538 (Version 2)
Quarter: 2020Q2

REPORT INFORMATION
  Report Type: Report from Study
  Country: IT (occurrence: IT)
  Receive Date: 20200429
  Receipt Date: 20200505
  Transmission Date: 20200714
  Serious: Yes (Other)
  Sender: FDA-Public Use
  Company Number: IT-PFIZER INC-2020169833

PATIENT
  Age: 56 Year
  Sex: Female

DRUGS (1)
  1. PACLITAXEL. [Suspect]
     Active Substance: PACLITAXEL
     Indication: BREAST CANCER METASTATIC
     Dosage: 80 MG/M2, WEEKLY
     Dates: start: 201509, end: 201601

REACTIONS (2)
  - Device related infection [Unknown]
  - Neuropathy peripheral [Unknown]
